FAERS Safety Report 6135324-3 (Version None)
Quarter: 2009Q1

REPORT INFORMATION
  Report Type: 
  Country: None (occurrence: None)
  Receive Date: 20090327
  Receipt Date: 20081219
  Transmission Date: 20090719
  Serious: Yes (Other)
  Sender: FDA-Public Use
  Company Number: US-BRISTOL-MYERS SQUIBB COMPANY-14451611

PATIENT
  Age: 63 Year
  Sex: Male

DRUGS (4)
  1. SPRYCEL [Suspect]
     Indication: CHRONIC MYELOID LEUKAEMIA
  2. VINCRISTINE [Concomitant]
  3. CYTOXAN [Concomitant]
  4. ARA-C [Concomitant]

REACTIONS (1)
  - ISCHAEMIC STROKE [None]
